FAERS Safety Report 23761701 (Version 1)
Quarter: 2024Q2

REPORT INFORMATION
  Report Type: Spontaneous
  Country: JP (occurrence: JP)
  Receive Date: 20240419
  Receipt Date: 20240419
  Transmission Date: 20240716
  Serious: Yes (Other)
  Sender: FDA-Public Use
  Company Number: JP-ABBVIE-5723263

PATIENT
  Age: 30 Year
  Sex: Male

DRUGS (1)
  1. SKYRIZI [Suspect]
     Active Substance: RISANKIZUMAB-RZAA
     Indication: Crohn^s disease
     Dosage: FORM STRENGTH: 600 MILLIGRAMS?DURATION TEXT WAS ONCE
     Route: 041
     Dates: start: 20240328, end: 20240328

REACTIONS (4)
  - Interstitial lung disease [Recovering/Resolving]
  - Malaise [Unknown]
  - Cough [Unknown]
  - Liver disorder [Unknown]

NARRATIVE: CASE EVENT DATE: 20240101
